FAERS Safety Report 8389360-7 (Version None)
Quarter: 2012Q2

REPORT INFORMATION
  Report Type: 
  Country: None (occurrence: None)
  Receive Date: 20120528
  Receipt Date: 20120516
  Transmission Date: 20120825
  Serious: Yes (Hospitalization)
  Sender: FDA-Public Use
  Company Number: FR-BAYER-2012-051823

PATIENT
  Age: 58 Year
  Sex: Female

DRUGS (5)
  1. HUMALOG [Concomitant]
     Route: 058
  2. LAMALINE [CAFFEINE,PAPAVER SOMNIFERUM LATEX,PARACETAMOL] [Suspect]
     Indication: SCIATICA
     Dosage: 1 DF, Q4HR
     Route: 048
     Dates: start: 20120404, end: 20120409
  3. NAPROXEN SODIUM [Suspect]
     Indication: SCIATICA
     Dosage: 1 DF, BID
     Route: 048
     Dates: start: 20120404, end: 20120409
  4. PHENOBARBITAL TAB [Concomitant]
     Dosage: 150 MG, QD
     Route: 048
  5. OMEPRAZOLE [Suspect]
     Indication: PROPHYLAXIS
     Dosage: 1 DF, QD
     Route: 048
     Dates: start: 20120404, end: 20120409

REACTIONS (1)
  - PANCREATITIS ACUTE [None]
